FAERS Safety Report 9333462 (Version 2)
Quarter: 2013Q3

REPORT INFORMATION
  Report Type: Spontaneous
  Country: US (occurrence: None)
  Receive Date: 20130604
  Receipt Date: 20130725
  Transmission Date: 20140515
  Serious: Yes (Other)
  Sender: FDA-Public Use
  Company Number: ACO_36470_2013

PATIENT
  Sex: Female
  Weight: 2.4 kg

DRUGS (16)
  1. AMPYRA (DALFAMPRIDINE) TABLET, 10MG [Suspect]
     Indication: FOETAL EXPOSURE DURING PREGNANCY
     Route: 064
     Dates: start: 201207, end: 20120726
  2. COPAXONE (GLATIRAMER ACETATE) [Concomitant]
  3. VITAMIN D (ERGOCALCIFEROL) [Concomitant]
  4. FOLIC ACID [Concomitant]
  5. ASPIRIN (ACETYLSALICYLIC ACID) [Concomitant]
  6. PRENATAL VITAMINS (ASCORBIC ACID, CALCIUM PANTOTHENATE, CYANOCOBALAMIN, ERGOCALCIFEROL, NICOTINAMIDE, PYRIDOXINE HYDROCHLORIDE, RETINOL PALMITATE, RIBOFLAVIN, THIAMINE MONONITRATE) [Concomitant]
  7. COLACE [Concomitant]
  8. DHA (DOCOSAHEXAENOIC ACID) [Concomitant]
  9. MAKENA (HYDROXYPROGESTERONE CAPROATE) [Concomitant]
  10. PROCARDIA (NIFEDIPINE) [Concomitant]
  11. BETAMETHASONE DIPROPIONATE [Concomitant]
  12. TOCOPHEROL (TOCOPHEROL ACETATE) [Concomitant]
  13. NICOTINIC ACID [Concomitant]
  14. RETINOL (RETINOL ACETATE) [Concomitant]
  15. MINERAL (PARAFFIN) [Concomitant]
  16. VITAMIN B (PYRIDOXINE HYDROCHLORIDE) [Concomitant]

REACTIONS (5)
  - Placental infarction [None]
  - Premature baby [None]
  - Small for dates baby [None]
  - Maternal drugs affecting foetus [None]
  - Caesarean section [None]
